FAERS Safety Report 5334770-5 (Version None)
Quarter: 2007Q2

REPORT INFORMATION
  Report Type: 
  Country: None (occurrence: None)
  Receive Date: 20070525
  Receipt Date: 20070517
  Transmission Date: 20071010
  Serious: Yes (Hospitalization)
  Sender: FDA-Public Use
  Company Number: GB-ROCHE-498977

PATIENT
  Age: 70 Year
  Sex: Female
  Weight: 82.6 kg

DRUGS (2)
  1. XENICAL [Suspect]
     Indication: OBESITY
     Route: 048
     Dates: start: 20061026
  2. MIXTARD HUMAN 70/30 [Concomitant]
     Route: 058

REACTIONS (1)
  - HYPOGLYCAEMIC COMA [None]
